FAERS Safety Report 9158871 (Version 1)
Quarter: 2013Q1

REPORT INFORMATION
  Report Type: Spontaneous
  Country: DK (occurrence: None)
  Receive Date: 20130211
  Receipt Date: 20130211
  Transmission Date: 20140127
  Serious: No
  Sender: FDA-Public Use
  Company Number: 2013MA000966

PATIENT
  Age: 81 Year
  Sex: Female

DRUGS (1)
  1. DONEPEZIL [Suspect]
     Indication: DEMENTIA ALZHEIMER^S TYPE
     Route: 048

REACTIONS (7)
  - Bradycardia [None]
  - Vomiting [None]
  - Nausea [None]
  - Hypotension [None]
  - Respiratory disorder [None]
  - Accidental overdose [None]
  - Overdose [None]
